FAERS Safety Report 25528476 (Version 1)
Quarter: 2025Q3

REPORT INFORMATION
  Report Type: Spontaneous
  Country: EU (occurrence: EU)
  Receive Date: 20250708
  Receipt Date: 20250708
  Transmission Date: 20251021
  Serious: Yes (Hospitalization)
  Sender: BOEHRINGER INGELHEIM
  Company Number: None

PATIENT
  Age: 79 Year
  Sex: Female

DRUGS (9)
  1. IPRATROPIUM BROMIDE [Suspect]
     Active Substance: IPRATROPIUM BROMIDE
     Indication: Chronic obstructive pulmonary disease
  2. GLYCOPYRRONIUM\INDACATEROL [Suspect]
     Active Substance: GLYCOPYRRONIUM\INDACATEROL
     Indication: Chronic obstructive pulmonary disease
  3. BUDESONIDE [Suspect]
     Active Substance: BUDESONIDE
     Indication: Chronic obstructive pulmonary disease
  4. CINNARIZINUM HASCO 25 MG [Concomitant]
     Indication: Product used for unknown indication
  5. BISOCARD 5 MG [Concomitant]
     Indication: Hypertension
  6. DORETA 37,5 MG + 325 MG [Concomitant]
     Indication: Product used for unknown indication
  7. HELICID 20 MG [Concomitant]
     Indication: Gastrooesophageal reflux disease
  8. BERODUAL (0,5 MG + 0,25MG)/ML [Concomitant]
     Indication: Chronic obstructive pulmonary disease
     Dosage: 2 X 20 DROPS (NEB)
  9. LEVOTHYROXINE SODIUM [Concomitant]
     Active Substance: LEVOTHYROXINE SODIUM
     Indication: Hypothyroidism

REACTIONS (5)
  - Cardiopulmonary failure [Unknown]
  - Pneumonia [Unknown]
  - Disorientation [Unknown]
  - Osteoporosis [Unknown]
  - Gait disturbance [Unknown]

NARRATIVE: CASE EVENT DATE: 20211103
